FAERS Safety Report 4916212-4 (Version None)
Quarter: 2006Q1

REPORT INFORMATION
  Report Type: 
  Country: None (occurrence: None)
  Receive Date: 20060217
  Receipt Date: 20050930
  Transmission Date: 20060701
  Serious: Yes (Death, Hospitalization, Other)
  Sender: FDA-Public Use
  Company Number: US-MERCK-0510USA00846

PATIENT
  Age: 87 Year
  Sex: Female
  Weight: 50 kg

DRUGS (2)
  1. VIOXX [Suspect]
     Indication: OSTEOARTHRITIS
     Route: 048
     Dates: start: 19990920, end: 20020403
  2. VIOXX [Suspect]
     Indication: OSTEOPENIA
     Route: 048
     Dates: start: 19990920, end: 20020403

REACTIONS (7)
  - ACUTE MYOCARDIAL INFARCTION [None]
  - BRONCHITIS [None]
  - CATARACT [None]
  - DEATH [None]
  - DEPRESSION [None]
  - HYPERTENSION [None]
  - INSOMNIA [None]
